FAERS Safety Report 5633264-7 (Version None)
Quarter: 2008Q1

REPORT INFORMATION
  Report Type: 
  Country: None (occurrence: None)
  Receive Date: 20080221
  Receipt Date: 20080218
  Transmission Date: 20080703
  Serious: Yes (Other)
  Sender: FDA-Public Use
  Company Number: JP-MERCK-0802USA04179

PATIENT

DRUGS (10)
  1. ALDOMET [Suspect]
     Route: 048
  2. HYPADIL [Concomitant]
     Route: 065
  3. OLMESARTAN MEDOXOMIL [Concomitant]
     Route: 048
  4. NORVASC [Concomitant]
     Route: 048
  5. CARDENALIN [Concomitant]
     Route: 048
  6. LASIX [Concomitant]
     Route: 065
  7. TRICHLORMETHIAZIDE [Concomitant]
     Route: 048
  8. LIVALO [Concomitant]
     Route: 048
  9. PROMOTIN [Concomitant]
     Route: 048
  10. ASPIRIN [Concomitant]
     Route: 048

REACTIONS (1)
  - CARDIAC FAILURE [None]
